FAERS Safety Report 20448307 (Version 2)
Quarter: 2022Q1

REPORT INFORMATION
  Report Type: Spontaneous
  Country: US (occurrence: US)
  Receive Date: 20220209
  Receipt Date: 20220301
  Transmission Date: 20220423
  Serious: No
  Sender: FDA-Public Use
  Company Number: US-BAYER-2022A017945

PATIENT
  Age: 41 Year
  Sex: Female

DRUGS (1)
  1. MIRENA [Suspect]
     Active Substance: LEVONORGESTREL
     Indication: Contraception
     Dosage: 20?G/DAY
     Route: 015
     Dates: start: 20210616

REACTIONS (4)
  - Device expulsion [Not Recovered/Not Resolved]
  - Abdominal pain lower [Recovered/Resolved]
  - Abdominal discomfort [None]
  - Device use issue [None]

NARRATIVE: CASE EVENT DATE: 20210101
